FAERS Safety Report 7037198-5 (Version None)
Quarter: 2010Q4

REPORT INFORMATION
  Report Type: 
  Country: None (occurrence: None)
  Receive Date: 20101011
  Receipt Date: 20100928
  Transmission Date: 20110411
  Serious: Yes (Death)
  Sender: FDA-Public Use
  Company Number: US-ELI_LILLY_AND_COMPANY-US201006000812

PATIENT
  Sex: Male
  Weight: 56.689 kg

DRUGS (9)
  1. FORTEO [Suspect]
     Indication: OSTEOPOROSIS
     Dosage: 20 UG, DAILY (1/D)
     Dates: start: 20090313, end: 20100401
  2. ATIVAN [Concomitant]
     Dosage: 1 MG, 3/D
  3. DILTIAZEM [Concomitant]
     Dosage: 120 MG, UNK
  4. LEVOTHYROXINE [Concomitant]
     Dosage: 112 UG, UNK
  5. PROZAC [Concomitant]
     Dosage: 10 MG, UNK
  6. ARICEPT [Concomitant]
     Dosage: 1 D/F, DAILY (1/D)
  7. VITAMIN D [Concomitant]
     Dosage: 1000 U, DAILY (1/D)
  8. NEXIUM [Concomitant]
     Dosage: 40 MG, UNK
  9. NITROGLYCERIN [Concomitant]
     Dosage: UNK, UNK

REACTIONS (1)
  - PANCREATIC CARCINOMA [None]
